FAERS Safety Report 12351039 (Version 1)
Quarter: 2016Q2

REPORT INFORMATION
  Report Type: Spontaneous
  Country: None (occurrence: None)
  Receive Date: 20160509
  Receipt Date: 20160509
  Transmission Date: 20160815
  Serious: No
  Sender: FDA-Public Use
  Company Number: None

PATIENT
  Sex: Male

DRUGS (1)
  1. ABACAVIR/LAMIVUDINE/ZIDOVUDINE 300/150/300 LUPIN [Suspect]
     Active Substance: ABACAVIR SULFATE\LAMIVUDINE\ZIDOVUDINE
     Indication: HIV INFECTION
     Dosage: 1 TABLET TWICE DAILY ORAL
     Route: 048
     Dates: start: 20131231

REACTIONS (1)
  - Myocardial infarction [None]
